FAERS Safety Report 20153031 (Version 1)
Quarter: 2021Q4

REPORT INFORMATION
  Report Type: Spontaneous
  Country: CA (occurrence: CA)
  Receive Date: 20211206
  Receipt Date: 20211206
  Transmission Date: 20220303
  Serious: Yes (Other)
  Sender: FDA-Public Use
  Company Number: CA-MODERNATX,INC.-MOD-2021-387743

PATIENT
  Age: 72 Year
  Sex: Female

DRUGS (3)
  1. MODERNA COVID-19 VACCINE [Suspect]
     Active Substance: ELASOMERAN
     Indication: COVID-19 immunisation
     Dosage: 1 DOSAGE FORM
     Route: 065
  2. ENTYVIO [Suspect]
     Active Substance: VEDOLIZUMAB
     Indication: Crohn^s disease
     Dosage: POWDER FOR SOLUTION FOR INFUSION
     Route: 042
  3. PREDNISONE [Concomitant]
     Active Substance: PREDNISONE
     Indication: Product used for unknown indication
     Dosage: UNK DOSAGE FORM
     Route: 065

REACTIONS (13)
  - Abdominal pain [Unknown]
  - Asthma [Unknown]
  - Blood pressure decreased [Unknown]
  - Chest pain [Unknown]
  - Condition aggravated [Unknown]
  - Diarrhoea [Unknown]
  - Foot fracture [Unknown]
  - Peripheral swelling [Unknown]
  - Pyrexia [Unknown]
  - Urinary retention [Unknown]
  - Urinary tract infection [Unknown]
  - Weight decreased [Unknown]
  - Weight increased [Unknown]
